FAERS Safety Report 6035992-0 (Version None)
Quarter: 2009Q1

REPORT INFORMATION
  Report Type: 
  Country: None (occurrence: None)
  Receive Date: 20090113
  Receipt Date: 20090108
  Transmission Date: 20090719
  Serious: Yes (Death, Hospitalization)
  Sender: FDA-Public Use
  Company Number: US-JNJFOC-20090102031

PATIENT
  Sex: Male
  Weight: 81.65 kg

DRUGS (2)
  1. DURAGESIC-100 [Suspect]
     Route: 062
  2. DURAGESIC-100 [Suspect]
     Indication: DIABETIC NEUROPATHY
     Route: 062

REACTIONS (5)
  - INTENTIONAL DRUG MISUSE [None]
  - LEG AMPUTATION [None]
  - LETHARGY [None]
  - RENAL FAILURE [None]
  - SURGERY [None]
